FAERS Safety Report 5725845-7 (Version None)
Quarter: 2008Q2

REPORT INFORMATION
  Report Type: 
  Country: None (occurrence: None)
  Receive Date: 20080429
  Receipt Date: 20080411
  Transmission Date: 20081010
  Serious: No
  Sender: FDA-Public Use
  Company Number: 002#2#2008-00249

PATIENT
  Age: 52 Year
  Sex: Female

DRUGS (8)
  1. NEUPRO [Suspect]
     Indication: PARKINSON'S DISEASE
     Dosage: 4MG/24H,1 IN 1 D,TRANSDERMAL
     Route: 062
     Dates: start: 20080111
  2. DURAGESIC-100 [Concomitant]
  3. FLUOXETINE [Concomitant]
  4. FUROSEMIDE [Concomitant]
  5. LORAZEPAM [Concomitant]
  6. ZOFRAN [Concomitant]
  7. COMPRO [Concomitant]
  8. ANTIBIOTICS [Concomitant]

REACTIONS (4)
  - DRUG INEFFECTIVE [None]
  - MEMORY IMPAIRMENT [None]
  - MUSCULOSKELETAL STIFFNESS [None]
  - TREMOR [None]
